FAERS Safety Report 18534579 (Version 1)
Quarter: 2020Q4

REPORT INFORMATION
  Report Type: Spontaneous
  Country: GB (occurrence: GB)
  Receive Date: 20201123
  Receipt Date: 20201123
  Transmission Date: 20210114
  Serious: Yes (Hospitalization)
  Sender: FDA-Public Use
  Company Number: GB-TEVA-2020-GB-1850320

PATIENT
  Age: 69 Year
  Sex: Male

DRUGS (11)
  1. DEXAMETHASONE. [Suspect]
     Active Substance: DEXAMETHASONE
     Indication: PLASMA CELL MYELOMA
     Dosage: ON DAY 1-2 OF CYCLE , UNIT DOSE : 20 MG
     Route: 048
     Dates: start: 20201008, end: 20201020
  2. CYCLIZINE [Concomitant]
     Active Substance: CYCLIZINE
     Dosage: PRN , UNIT DOSE : 150 MG
     Route: 048
  3. OMEPRAZOLE. [Concomitant]
     Active Substance: OMEPRAZOLE
     Dosage: UNIT DOSE : 20 MG
     Route: 048
  4. CYCLOPHOSPHAMIDE. [Concomitant]
     Active Substance: CYCLOPHOSPHAMIDE
     Dosage: ON DAY 1 AND 8 OF CYCLE ,UNIT DOSE : 500 MG
     Route: 048
     Dates: start: 20201008
  5. FUROSEMIDE. [Concomitant]
     Active Substance: FUROSEMIDE
     Dosage: UNIT DOSE : 40 MG
     Route: 048
     Dates: start: 20201012, end: 20201020
  6. LORATADINE. [Concomitant]
     Active Substance: LORATADINE
     Dosage: UNIT DOSE : 10 MG
     Route: 048
     Dates: start: 20201001
  7. TINZAPARIN SODIUM [Concomitant]
     Active Substance: TINZAPARIN SODIUM
     Dosage: 0.45ML , UNIT DOSE : 4500 IU , WHILST ON LENALIDOMIDE
     Route: 058
  8. HYLO-FORTE [Concomitant]
     Active Substance: HYALURONATE SODIUM
     Dosage: PRN , UNIT DOSE : 2 GTT , PRESERVATIVE FREE (SCOPE OPHTHALMICS LTD)
     Route: 061
  9. LENALIDOMIDE [Concomitant]
     Active Substance: LENALIDOMIDE
     Dosage: FOR 21 DAYS EACH CYCLE , UNIT DOSE : 25 MG
     Route: 048
     Dates: start: 20201008
  10. ACICLOVIR [Concomitant]
     Active Substance: ACYCLOVIR
     Dosage: UNIT DOSE : 800 MG
     Route: 048
  11. CANDESARTAN. [Concomitant]
     Active Substance: CANDESARTAN
     Dosage: UNIT DOSE : 16 MG
     Route: 048

REACTIONS (3)
  - Oedema peripheral [Recovering/Resolving]
  - Proteinuria [Unknown]
  - Nephrotic syndrome [Unknown]

NARRATIVE: CASE EVENT DATE: 20201008
